FAERS Safety Report 19376978 (Version 1)
Quarter: 2021Q2

REPORT INFORMATION
  Report Type: Report from Study
  Country: CA (occurrence: CA)
  Receive Date: 20210604
  Receipt Date: 20210604
  Transmission Date: 20210717
  Serious: Yes (Death, Other)
  Sender: FDA-Public Use
  Company Number: CA-GILEAD-2021-0533762

PATIENT
  Age: 67 Year
  Sex: Female

DRUGS (2)
  1. IBAVYR [Suspect]
     Active Substance: RIBAVIRIN
     Indication: CHRONIC HEPATITIS C
     Dosage: UNKNOWN
     Route: 065
     Dates: start: 20210402
  2. SOFOSBUVIR W/VELPATASVIR [Suspect]
     Active Substance: SOFOSBUVIR\VELPATASVIR
     Indication: CHRONIC HEPATITIS C
     Dosage: (400/100 MG)
     Route: 065
     Dates: start: 20210402

REACTIONS (1)
  - Death [Fatal]

NARRATIVE: CASE EVENT DATE: 20210528
